FAERS Safety Report 4301220-7 (Version None)
Quarter: 2004Q1

REPORT INFORMATION
  Report Type: 
  Country: None (occurrence: None)
  Receive Date: 20040218
  Receipt Date: 20031105
  Transmission Date: 20041129
  Serious: No
  Sender: FDA-Public Use
  Company Number: 2003-11-0276

PATIENT
  Age: 49 Year
  Sex: Female
  Weight: 70.3075 kg

DRUGS (2)
  1. PEG-INTRON [Suspect]
     Indication: HEPATITIS C
     Dosage: 120*MU-UNK
     Route: 058
     Dates: start: 20021021
  2. REBETOL [Suspect]
     Indication: HEPATITIS C
     Dosage: 600*MG QD
     Route: 048
     Dates: start: 20021021

REACTIONS (1)
  - NONSPECIFIC REACTION [None]
